FAERS Safety Report 13864891 (Version 1)
Quarter: 2017Q3

REPORT INFORMATION
  Report Type: Spontaneous
  Country: JP (occurrence: JP)
  Receive Date: 20170814
  Receipt Date: 20170814
  Transmission Date: 20171127
  Serious: Yes (Other)
  Sender: FDA-Public Use
  Company Number: JP-GLENMARK PHARMACEUTICALS-2017GMK028463

PATIENT

DRUGS (7)
  1. ENTACAPONE. [Concomitant]
     Active Substance: ENTACAPONE
     Indication: PARKINSON^S DISEASE
     Dosage: 300 MG
     Route: 065
  2. PRAMIPEXOLE DIHYDROCHLORIDE. [Suspect]
     Active Substance: PRAMIPEXOLE DIHYDROCHLORIDE
     Dosage: 1.5 MG, IMMEDIATE-RELEASE PRAMIPEXOLE (PPX-IR)
     Route: 065
  3. LEVODOPA/CARBIDOPA [Concomitant]
     Active Substance: CARBIDOPA\LEVODOPA
     Indication: PARKINSON^S DISEASE
     Dosage: 300 MG
     Route: 065
  4. BOTULINUM TOXIN TYPE A [Concomitant]
     Active Substance: BOTULINUM TOXIN TYPE A
     Indication: NECK PAIN
     Dosage: TOTAL OF 40 UT
     Route: 065
  5. PRAMIPEXOLE DIHYDROCHLORIDE. [Suspect]
     Active Substance: PRAMIPEXOLE DIHYDROCHLORIDE
     Indication: PARKINSON^S DISEASE
     Dosage: 1.5 MG, QD, IMMEDIATE-RELEASE PRAMIPEXOLE (PPX-IR)
     Route: 065
  6. PRAMIPEXOLE DIHYDROCHLORIDE. [Suspect]
     Active Substance: PRAMIPEXOLE DIHYDROCHLORIDE
     Dosage: 3 MG, IMMEDIATE-RELEASE PRAMIPEXOLE (PPX-IR)
     Route: 065
  7. ZONISAMIDE. [Concomitant]
     Active Substance: ZONISAMIDE
     Indication: PARKINSON^S DISEASE
     Dosage: 2.5 MG
     Route: 065

REACTIONS (1)
  - Torticollis [Recovered/Resolved]
